FAERS Safety Report 15186972 (Version 1)
Quarter: 2018Q3

REPORT INFORMATION
  Report Type: Report from Study
  Country: US (occurrence: US)
  Receive Date: 20180723
  Receipt Date: 20180723
  Transmission Date: 20181010
  Serious: No
  Sender: FDA-Public Use
  Company Number: US-EXELIXIS-CABO-17010598

PATIENT
  Age: 53 Year
  Sex: Female

DRUGS (10)
  1. ATIVAN [Concomitant]
     Active Substance: LORAZEPAM
  2. CABOMETYX [Suspect]
     Active Substance: CABOZANTINIB S-MALATE
     Dosage: 40 MG, QD
     Route: 048
  3. ASA [Concomitant]
     Active Substance: ASPIRIN
  4. FLONASE [Concomitant]
     Active Substance: FLUTICASONE PROPIONATE
  5. ANTIVERT [Concomitant]
     Active Substance: MECLIZINE HYDROCHLORIDE
  6. LAMICTAL [Concomitant]
     Active Substance: LAMOTRIGINE
  7. PRILOSEC [Concomitant]
     Active Substance: OMEPRAZOLE MAGNESIUM
  8. SENOKOT?S [Concomitant]
     Active Substance: DOCUSATE SODIUM\SENNOSIDES
  9. VITAMIN D3 [Concomitant]
     Active Substance: CHOLECALCIFEROL
  10. CABOMETYX [Suspect]
     Active Substance: CABOZANTINIB S-MALATE
     Indication: NEUROENDOCRINE TUMOUR
     Dosage: 60 MG, QD
     Route: 048

REACTIONS (10)
  - Oral discomfort [Unknown]
  - Off label use [Unknown]
  - Skin fissures [Unknown]
  - Asthenia [Unknown]
  - Fatigue [Unknown]
  - Tongue blistering [Unknown]
  - Dysgeusia [Unknown]
  - Hair colour changes [Unknown]
  - Dry skin [Unknown]
  - Hypertension [Unknown]

NARRATIVE: CASE EVENT DATE: 20180209
